FAERS Safety Report 7720901-6 (Version None)
Quarter: 2011Q3

REPORT INFORMATION
  Report Type: 
  Country: None (occurrence: None)
  Receive Date: 20110831
  Receipt Date: 20110817
  Transmission Date: 20111222
  Serious: No
  Sender: FDA-Public Use
  Company Number: US-B.I. PHARMACEUTICALS,INC./RIDGEFIELD-2011-BP-20165BP

PATIENT
  Age: 84 Year
  Sex: Male

DRUGS (1)
  1. AGGRENOX [Suspect]
     Indication: TRANSIENT ISCHAEMIC ATTACK
     Route: 048
     Dates: start: 19950101

REACTIONS (3)
  - DYSPHAGIA [None]
  - DEMENTIA [None]
  - DEMENTIA ALZHEIMER'S TYPE [None]
